FAERS Safety Report 18436219 (Version 1)
Quarter: 2020Q4

REPORT INFORMATION
  Report Type: Spontaneous
  Country: US (occurrence: US)
  Receive Date: 20201028
  Receipt Date: 20201028
  Transmission Date: 20210114
  Serious: Yes (Other)
  Sender: FDA-Public Use
  Company Number: US-AMERICAN REGENT INC-2020002208

PATIENT
  Age: 64 Year
  Sex: Male

DRUGS (8)
  1. EPINEPHRINE INJECTION, USP (0517-1071-01) [Suspect]
     Active Substance: EPINEPHRINE
     Indication: VASOPLEGIA SYNDROME
     Dosage: TITRATED UP TO 0.06 MCG/KG/MIN
     Route: 065
  2. DEXMEDETOMIDINE HYDROCHLORIDE INJECTION (0517-0995-25) [Concomitant]
     Active Substance: DEXMEDETOMIDINE HYDROCHLORIDE
     Indication: SEDATION
     Dosage: UNK
     Route: 042
  3. NOREPINEPHRINE. [Suspect]
     Active Substance: NOREPINEPHRINE
     Indication: VASOPLEGIA SYNDROME
     Dosage: TITRATED UP TO 0.1 MCG/KG/MIN
     Route: 065
  4. FENTANYL. [Concomitant]
     Active Substance: FENTANYL
     Indication: SEDATION
     Dosage: AS NEEDED FOR PAIN
  5. SERTRALINE [Concomitant]
     Active Substance: SERTRALINE HYDROCHLORIDE
     Indication: DEPRESSION
     Dosage: 100 MILLIGRAM, QD; LAST DOSE TAKEN THE MORNING OF SURGERY
     Route: 048
  6. FENTANYL. [Concomitant]
     Active Substance: FENTANYL
     Indication: ANAESTHESIA
     Dosage: 750 MICROGRAM
     Route: 042
  7. FENTANYL. [Concomitant]
     Active Substance: FENTANYL
     Indication: PAIN MANAGEMENT
  8. VASOPRESSIN INJECTION, USP [Suspect]
     Active Substance: VASOPRESSIN
     Indication: VASOPLEGIA SYNDROME
     Dosage: TITRATED UPTO 4 U/H
     Route: 065

REACTIONS (5)
  - Drug ineffective [Recovered/Resolved]
  - Post procedural hypotension [Recovered/Resolved]
  - Drug ineffective for unapproved indication [Recovered/Resolved]
  - Vascular resistance systemic decreased [Recovered/Resolved]
  - Product use in unapproved indication [Unknown]
